FAERS Safety Report 10288058 (Version 2)
Quarter: 2014Q1

REPORT INFORMATION
  Report Type: Spontaneous
  Country: US (occurrence: None)
  Receive Date: 20120817
  Receipt Date: 20130815
  Transmission Date: 20141002
  Serious: Yes (Other)
  Sender: FDA-Public Use
  Company Number: ADR-2012-00858

PATIENT
  Sex: Male

DRUGS (5)
  1. BACLOFEN INTRATHECAL (BACLOFEN INJECTION) [Suspect]
     Indication: PAIN
  2. BACLOFEN INTRATHECAL (BACLOFEN INJECTION) [Suspect]
     Indication: PAIN
  3. MORPHINE [Concomitant]
  4. DILAUDID (HYDROMORPHONE) [Concomitant]
  5. SALINE (PFNS, PBS) [Concomitant]

REACTIONS (3)
  - Loss of consciousness [None]
  - Adverse drug reaction [None]
  - Cardiac disorder [None]
